FAERS Safety Report 9852477 (Version 1)
Quarter: 2014Q1

REPORT INFORMATION
  Report Type: Spontaneous
  Country: ES (occurrence: ES)
  Receive Date: 20140129
  Receipt Date: 20140129
  Transmission Date: 20141002
  Serious: Yes (Other)
  Sender: FDA-Public Use
  Company Number: ES-BRISTOL-MYERS SQUIBB COMPANY-20092839

PATIENT
  Age: 41 Year
  Sex: Male

DRUGS (1)
  1. BARACLUDE TABS 0.5 MG [Suspect]
     Indication: HEPATITIS B
     Route: 048

REACTIONS (2)
  - Renal disorder [Not Recovered/Not Resolved]
  - Dysphagia [Not Recovered/Not Resolved]
